FAERS Safety Report 13239208 (Version 2)
Quarter: 2017Q1

REPORT INFORMATION
  Report Type: Report from Study
  Country: US (occurrence: US)
  Receive Date: 20170216
  Receipt Date: 20170317
  Transmission Date: 20170428
  Serious: Yes (Other)
  Sender: FDA-Public Use
  Company Number: US-AMGEN-USASL2017022550

PATIENT
  Age: 71 Year
  Sex: Male

DRUGS (1)
  1. REPATHA [Suspect]
     Active Substance: EVOLOCUMAB
     Indication: BLOOD CHOLESTEROL INCREASED
     Dosage: 140 MG, Q2WK
     Route: 065
     Dates: end: 201609

REACTIONS (6)
  - Asthenia [Unknown]
  - Blood triglycerides decreased [Unknown]
  - Gait disturbance [Unknown]
  - Amnesia [Unknown]
  - High density lipoprotein decreased [Unknown]
  - Low density lipoprotein decreased [Unknown]
